FAERS Safety Report 6136905-3 (Version None)
Quarter: 2009Q1

REPORT INFORMATION
  Report Type: 
  Country: None (occurrence: None)
  Receive Date: 20090326
  Receipt Date: 20090326
  Transmission Date: 20090719
  Serious: No
  Sender: FDA-Public Use
  Company Number: None

PATIENT
  Sex: Male
  Weight: 95.2554 kg

DRUGS (2)
  1. ZOLPIDEM [Suspect]
     Indication: INSOMNIA
     Dosage: 10MG NIGHTLY PO
     Route: 048
     Dates: start: 20081201, end: 20090323
  2. ZOLPIDEM [Suspect]
     Indication: SLEEP APNOEA SYNDROME
     Dosage: 10MG NIGHTLY PO
     Route: 048
     Dates: start: 20081201, end: 20090323

REACTIONS (2)
  - IRREGULAR SLEEP PHASE [None]
  - PRODUCT QUALITY ISSUE [None]
